FAERS Safety Report 25745695 (Version 1)
Quarter: 2025Q3

REPORT INFORMATION
  Report Type: Spontaneous
  Country: US (occurrence: US)
  Receive Date: 20250901
  Receipt Date: 20250901
  Transmission Date: 20251020
  Serious: No
  Sender: pharmaAND
  Company Number: US-Pharmaand-2024000903

PATIENT
  Age: 79 Year
  Sex: Female

DRUGS (2)
  1. PEGASYS [Suspect]
     Active Substance: PEGINTERFERON ALFA-2A
     Indication: Lymphoma
     Route: 058
     Dates: start: 202407
  2. MOGAMULIZUMAB [Concomitant]
     Active Substance: MOGAMULIZUMAB
     Indication: Lymphoma

REACTIONS (11)
  - Confusional state [Unknown]
  - Peripheral swelling [Recovering/Resolving]
  - Urinary incontinence [Unknown]
  - Rash [Unknown]
  - Dry mouth [Unknown]
  - Feeling cold [Unknown]
  - Pruritus [Unknown]
  - Haemoglobin decreased [Recovering/Resolving]
  - Off label use [Recovered/Resolved]
  - Lymphoma [Recovered/Resolved]
  - Product administration error [Recovered/Resolved]
